FAERS Safety Report 4364557-1 (Version None)
Quarter: 2004Q2

REPORT INFORMATION
  Report Type: 
  Country: None (occurrence: None)
  Receive Date: 20040525
  Receipt Date: 20040330
  Transmission Date: 20050107
  Serious: Yes (Hospitalization)
  Sender: FDA-Public Use
  Company Number: US-MERCK-0404USA00084

PATIENT
  Age: 79 Year
  Sex: Male

DRUGS (4)
  1. ZETIA [Suspect]
     Indication: HYPERCHOLESTEROLAEMIA
     Route: 048
     Dates: start: 20040226
  2. HERBS (UNSPECIFIED) [Concomitant]
     Route: 065
  3. NIFEDIPINE [Concomitant]
     Route: 065
  4. TOLBUTAMIDE [Concomitant]
     Route: 065

REACTIONS (2)
  - CHOLESTASIS [None]
  - HEPATITIS VIRAL [None]
